FAERS Safety Report 5239529-5 (Version None)
Quarter: 2007Q1

REPORT INFORMATION
  Report Type: 
  Country: None (occurrence: None)
  Receive Date: 20070212
  Receipt Date: 20070130
  Transmission Date: 20070707
  Serious: Yes (Death, Other)
  Sender: FDA-Public Use
  Company Number: 15562

PATIENT
  Sex: Female

DRUGS (13)
  1. CYTOSINE ARABINOSIDE. MFR: NOT SPECIFIED [Suspect]
     Indication: MYELOID LEUKAEMIA
     Dosage: 100 MG/M2 DAILY INJ
  2. CYTOSINE ARABINOSIDE. MFR: NOT SPECIFIED [Suspect]
     Indication: MYELOID LEUKAEMIA
     Dosage: 100 MG/M2 BID INJ
  3. CYTOSINE ARABINOSIDE. MFR:  NOT SPECIFIED [Suspect]
     Indication: MYELOID LEUKAEMIA
     Dosage: 3 G/M2 BID INJ
  4. CYTOSINE ARABINOSIDE. MFR:  NOT SPECIFIED [Suspect]
     Indication: MYELOID LEUKAEMIA
     Dosage: 200 MG/M2 DAILY INJ
  5. CYTOSINE ARABINOSIDE. MFR:  NOT SPECIFIED [Suspect]
     Indication: MYELOID LEUKAEMIA
     Dosage: 40 MG ONCE IT
     Route: 037
  6. CYTOSINE ARABINOSIDE. MFR:  NOT SPECIFIED [Suspect]
     Indication: MYELOID LEUKAEMIA
     Dosage: 200 MG/M2 DAILY INJ
  7. CYTOSINE ARABINOSIDE.. MFR:  NOT SPECIFIED [Suspect]
     Indication: MYELOID LEUKAEMIA
     Dosage: 200 MG/M2 DAILY INJ
  8. IDARUBICIN HCL [Concomitant]
  9. DAUNORUBICIN HCL [Concomitant]
  10. ETOPOSIDE [Concomitant]
  11. THIOGUANINE [Concomitant]
  12. DEXAMETHASONE [Concomitant]
  13. CYCLOPHOSPHAMIDE [Concomitant]

REACTIONS (8)
  - ACUTE GRAFT VERSUS HOST DISEASE IN INTESTINE [None]
  - BONE MARROW TRANSPLANT [None]
  - CEREBELLAR SYNDROME [None]
  - DISORIENTATION [None]
  - HALLUCINATION, VISUAL [None]
  - NEUROTOXICITY [None]
  - RENAL IMPAIRMENT [None]
  - SEPSIS [None]
